FAERS Safety Report 9445153 (Version 1)
Quarter: 2013Q3

REPORT INFORMATION
  Report Type: Spontaneous
  Country: CO (occurrence: CO)
  Receive Date: 20130807
  Receipt Date: 20130807
  Transmission Date: 20140515
  Serious: Yes (Life-Threatening)
  Sender: FDA-Public Use
  Company Number: CO-BAXTER-2013BAX030578

PATIENT
  Age: 14 Month
  Sex: 0

DRUGS (1)
  1. FEIBA 500 U. [Suspect]
     Indication: HAEMOPHILIA A WITH ANTI FACTOR VIII
     Route: 042
     Dates: start: 201303, end: 20130719

REACTIONS (1)
  - Factor VIII inhibition [Recovering/Resolving]
